FAERS Safety Report 9866910 (Version 1)
Quarter: 2014Q1

REPORT INFORMATION
  Report Type: Spontaneous
  Country: US (occurrence: None)
  Receive Date: 20140203
  Receipt Date: 20140203
  Transmission Date: 20141002
  Serious: Yes (Disabling, Other)
  Sender: FDA-Public Use
  Company Number: None

PATIENT
  Age: 50 Year
  Sex: Female
  Weight: 51.71 kg

DRUGS (1)
  1. OPANA ER [Suspect]
     Indication: PAIN
     Route: 048
     Dates: start: 20140124, end: 20140126

REACTIONS (9)
  - Tinnitus [None]
  - Headache [None]
  - Dizziness [None]
  - Somnolence [None]
  - Anxiety [None]
  - Depression [None]
  - Crying [None]
  - Cold sweat [None]
  - Nausea [None]
